FAERS Safety Report 21842454 (Version 1)
Quarter: 2023Q1

REPORT INFORMATION
  Report Type: Spontaneous
  Country: US (occurrence: None)
  Receive Date: 20230109
  Receipt Date: 20230109
  Transmission Date: 20230418
  Serious: Yes (Hospitalization)
  Sender: FDA-Public Use
  Company Number: None

PATIENT
  Sex: Female

DRUGS (14)
  1. TOBI PODHALER [Suspect]
     Active Substance: TOBRAMYCIN
     Indication: Cystic fibrosis
     Dosage: INHALE 4 CAPSULES IN LUNGS VIA PODHALER TWICE DAILY FOR 28 DAYS ON AND 28 DAYS OFF
     Route: 055
     Dates: start: 20220706
  2. COMPLETE FORM SOFTGEL [Concomitant]
  3. FLUTICASONE/SALM INH [Concomitant]
  4. LEVALBUTEROL [Concomitant]
     Active Substance: LEVALBUTEROL
  5. LEVALBUTEROL TAR [Concomitant]
  6. MELATONIN TAB [Concomitant]
  7. NEBUSAL [Concomitant]
  8. PANTOPRAZOLE SOD TAB [Concomitant]
  9. SPIRIVA HANDIHALER CAPS [Concomitant]
  10. VITAMIN A CAP [Concomitant]
  11. VITAMIN D2 CAP [Concomitant]
  12. VITAMIN D3 TAB [Concomitant]
  13. VITAMIN E SOFTGEL [Concomitant]
  14. XOPENEX HFA AER [Concomitant]

REACTIONS (3)
  - Infection [None]
  - Dyspnoea [None]
  - Decreased appetite [None]
